FAERS Safety Report 12812532 (Version 3)
Quarter: 2017Q1

REPORT INFORMATION
  Report Type: Spontaneous
  Country: IT (occurrence: IT)
  Receive Date: 20161005
  Receipt Date: 20170127
  Transmission Date: 20170428
  Serious: Yes (Other)
  Sender: FDA-Public Use
  Company Number: IT-ABBVIE-16P-083-1745057-00

PATIENT
  Age: 40 Year
  Sex: Female
  Weight: 80 kg

DRUGS (7)
  1. DEPAKIN CHRONO [Suspect]
     Active Substance: VALPROIC ACID
     Dosage: TABLET, EXTENDED RELEASE
     Route: 048
     Dates: start: 20160910, end: 20160910
  2. EN [Suspect]
     Active Substance: DELORAZEPAM
     Indication: INTENTIONAL SELF-INJURY
     Route: 048
     Dates: start: 20160911, end: 20160911
  3. RISPERDAL [Suspect]
     Active Substance: RISPERIDONE
     Indication: INTENTIONAL SELF-INJURY
     Route: 048
     Dates: start: 20080703, end: 20090209
  4. DEPAKIN CHRONO [Suspect]
     Active Substance: VALPROIC ACID
     Dosage: TABLET, EXTENDED RELEASE
     Route: 048
     Dates: start: 20160911, end: 20160911
  5. RISPERDAL [Suspect]
     Active Substance: RISPERIDONE
     Route: 048
     Dates: start: 20160911, end: 20160911
  6. DEPAKIN CHRONO [Suspect]
     Active Substance: VALPROIC ACID
     Indication: PRODUCT USED FOR UNKNOWN INDICATION
     Dosage: TABLET, EXTENDED RELEASE
     Route: 048
     Dates: start: 20080703, end: 20090209
  7. DEPAKIN CHRONO [Suspect]
     Active Substance: VALPROIC ACID
     Indication: INTENTIONAL SELF-INJURY
     Dosage: TABLET, EXTENDED RELEASE
     Route: 048
     Dates: start: 20080703, end: 20090209

REACTIONS (2)
  - Intentional self-injury [Unknown]
  - Intentional overdose [Unknown]

NARRATIVE: CASE EVENT DATE: 20160911
